FAERS Safety Report 17864231 (Version 1)
Quarter: 2020Q2

REPORT INFORMATION
  Report Type: Report from Study
  Country: JP (occurrence: JP)
  Receive Date: 20200605
  Receipt Date: 20200605
  Transmission Date: 20200714
  Serious: Yes (Death)
  Sender: FDA-Public Use
  Company Number: PHHY2012JP142655

PATIENT
  Age: 81 Year
  Sex: Female
  Weight: 51 kg

DRUGS (9)
  1. STARSIS [Suspect]
     Active Substance: NATEGLINIDE
     Indication: PRODUCT USED FOR UNKNOWN INDICATION
     Route: 048
  2. PREDONINE [Suspect]
     Active Substance: PREDNISOLONE
     Indication: IMMUNE THROMBOCYTOPENIA
     Dosage: 25 MG,
     Route: 048
     Dates: end: 20120104
  3. PREDONINE [Suspect]
     Active Substance: PREDNISOLONE
     Dosage: 40 MG,
     Route: 048
     Dates: start: 20120207
  4. CEPHARANTHINE [Suspect]
     Active Substance: CEPHARANTHINE
     Indication: IMMUNE THROMBOCYTOPENIA
     Dosage: 60 MG,
     Route: 048
     Dates: end: 20120207
  5. BONZOL [Suspect]
     Active Substance: LANSOPRAZOLE
     Indication: IMMUNE THROMBOCYTOPENIA
     Dosage: 100 MG,
     Route: 048
     Dates: end: 20120207
  6. PREDONINE [Suspect]
     Active Substance: PREDNISOLONE
     Dosage: 80 MG,
     Route: 048
     Dates: start: 20120202, end: 20120206
  7. REVOLADE TAB [Suspect]
     Active Substance: ELTROMBOPAG
     Indication: IMMUNE THROMBOCYTOPENIA
     Dosage: 12.5 MG,
     Route: 048
     Dates: start: 20111228, end: 20120209
  8. PREDONINE [Suspect]
     Active Substance: PREDNISOLONE
     Indication: IMMUNE THROMBOCYTOPENIA
     Dosage: 20 MG,
     Route: 048
     Dates: start: 20120105, end: 20120201
  9. LENDORMIN [Suspect]
     Active Substance: BROTIZOLAM
     Indication: PRODUCT USED FOR UNKNOWN INDICATION
     Route: 048

REACTIONS (2)
  - Pulmonary embolism [Fatal]
  - Alanine aminotransferase increased [Recovered/Resolved]

NARRATIVE: CASE EVENT DATE: 20120123
